FAERS Safety Report 18669163 (Version 1)
Quarter: 2020Q4

REPORT INFORMATION
  Report Type: Spontaneous
  Country: US (occurrence: US)
  Receive Date: 20201228
  Receipt Date: 20201228
  Transmission Date: 20210114
  Serious: No
  Sender: FDA-Public Use
  Company Number: US-COOPERSURGICAL, INC.-US-2020CPS000939

PATIENT
  Age: 27 Year
  Sex: Female
  Weight: 47.62 kg

DRUGS (4)
  1. PARAGARD T 380A [Suspect]
     Active Substance: COPPER
     Indication: MENSTRUATION IRREGULAR
     Dosage: UNK
     Route: 015
     Dates: start: 20190926, end: 20200407
  2. REMERON [Concomitant]
     Active Substance: MIRTAZAPINE
     Indication: PRODUCT USED FOR UNKNOWN INDICATION
     Dosage: UNK
     Route: 065
  3. PARAGARD T 380A [Suspect]
     Active Substance: COPPER
     Indication: PULMONARY EMBOLISM
  4. PARAGARD T 380A [Suspect]
     Active Substance: COPPER
     Indication: FACTOR V LEIDEN CARRIER

REACTIONS (6)
  - Device expulsion [Recovered/Resolved]
  - Nausea [Recovered/Resolved]
  - Syncope [Recovered/Resolved]
  - Off label use [Recovered/Resolved]
  - Coital bleeding [Recovered/Resolved]
  - Pelvic pain [Recovered/Resolved]

NARRATIVE: CASE EVENT DATE: 20190926
